FAERS Safety Report 4404386-3 (Version None)
Quarter: 2004Q3

REPORT INFORMATION
  Report Type: 
  Country: None (occurrence: None)
  Receive Date: 20040721
  Receipt Date: 20040721
  Transmission Date: 20050211
  Serious: Yes (Hospitalization)
  Sender: FDA-Public Use
  Company Number: None

PATIENT
  Age: 88 Year
  Sex: Male

DRUGS (2)
  1. GLIPIZIDE [Suspect]
  2. ROSIGLITAZONE MALEATE [Suspect]

REACTIONS (1)
  - HYPOGLYCAEMIA [None]
